FAERS Safety Report 4640987-5 (Version None)
Quarter: 2005Q2

REPORT INFORMATION
  Report Type: 
  Country: None (occurrence: None)
  Receive Date: 20050421
  Receipt Date: 20040414
  Transmission Date: 20051028
  Serious: Yes (Hospitalization)
  Sender: FDA-Public Use
  Company Number: JP-BOEHRINGER INGELHEIM PHARMACEUTICALS, INC.-2004-BP-02914NB

PATIENT
  Sex: Female
  Weight: 62 kg

DRUGS (7)
  1. MICARDIS [Suspect]
     Indication: HYPERTENSION
     Route: 048
     Dates: start: 20040115, end: 20040413
  2. AZULFIDINE EN-TABS [Suspect]
     Indication: RHEUMATOID ARTHRITIS
     Route: 048
     Dates: start: 19960530, end: 20040413
  3. RANTUDIL [Concomitant]
     Indication: RHEUMATOID ARTHRITIS
     Route: 048
     Dates: start: 19960530, end: 20040413
  4. ONEALFA [Concomitant]
     Indication: OSTEOPOROSIS
     Route: 048
     Dates: start: 19990511, end: 20040413
  5. NIM [Concomitant]
     Indication: GASTROENTERITIS
     Route: 048
     Dates: start: 20030224
  6. PODONIN S [Concomitant]
     Indication: GASTROENTERITIS
     Route: 048
     Dates: start: 20030224
  7. LEBENIN S [Concomitant]
     Indication: GASTROENTERITIS
     Route: 048
     Dates: start: 20030224

REACTIONS (3)
  - ERYTHEMA MULTIFORME [None]
  - HEPATITIS [None]
  - LEUKOPENIA [None]
